FAERS Safety Report 14004720 (Version 2)
Quarter: 2017Q4

REPORT INFORMATION
  Report Type: Report from Study
  Country: CA (occurrence: CA)
  Receive Date: 20170922
  Receipt Date: 20171116
  Transmission Date: 20180321
  Serious: Yes (Other)
  Sender: FDA-Public Use
  Company Number: CA-BAYER-2017-175996

PATIENT
  Age: 54 Year
  Sex: Female

DRUGS (1)
  1. BETAFERON [Suspect]
     Active Substance: INTERFERON BETA-1B
     Indication: MULTIPLE SCLEROSIS
     Dosage: 0.25 MG, UNK
     Route: 058
     Dates: start: 20040501

REACTIONS (21)
  - Heart rate increased [Recovered/Resolved]
  - Influenza like illness [None]
  - Surgery [None]
  - Inappropriate schedule of drug administration [Recovered/Resolved]
  - Chest pain [Not Recovered/Not Resolved]
  - Laparoscopic surgery [None]
  - Injection site haemorrhage [Unknown]
  - Arthralgia [Not Recovered/Not Resolved]
  - Ligament sprain [None]
  - Scar [None]
  - Influenza like illness [Not Recovered/Not Resolved]
  - Headache [None]
  - Tremor [Recovered/Resolved]
  - Bone pain [Not Recovered/Not Resolved]
  - Pyrexia [Not Recovered/Not Resolved]
  - Myalgia [None]
  - Arthralgia [None]
  - Skin irritation [Not Recovered/Not Resolved]
  - Chills [Recovered/Resolved]
  - Arthralgia [Not Recovered/Not Resolved]
  - Chest pain [Not Recovered/Not Resolved]

NARRATIVE: CASE EVENT DATE: 201709
